FAERS Safety Report 14719379 (Version 1)
Quarter: 2018Q1

REPORT INFORMATION
  Report Type: Spontaneous
  Country: US (occurrence: US)
  Receive Date: 20180330
  Receipt Date: 20180330
  Transmission Date: 20180509
  Serious: Yes (Hospitalization, Other)
  Sender: FDA-Public Use
  Company Number: None

PATIENT
  Age: 58 Year
  Sex: Male
  Weight: 68.04 kg

DRUGS (2)
  1. BRILINTA [Suspect]
     Active Substance: TICAGRELOR
     Indication: STENT PLACEMENT
     Route: 048
     Dates: start: 20180311, end: 20180327
  2. BRILINTA [Suspect]
     Active Substance: TICAGRELOR
     Indication: MYOCARDIAL INFARCTION
     Route: 048
     Dates: start: 20180311, end: 20180327

REACTIONS (12)
  - Nausea [None]
  - Pain [None]
  - Dyspnoea [None]
  - Vision blurred [None]
  - Respiratory rate [None]
  - Delirium [None]
  - Dehydration [None]
  - Headache [None]
  - Vomiting [None]
  - Pyrexia [None]
  - Muscular weakness [None]
  - Cough [None]

NARRATIVE: CASE EVENT DATE: 20180311
